FAERS Safety Report 19237378 (Version 2)
Quarter: 2021Q4

REPORT INFORMATION
  Report Type: Spontaneous
  Country: IT (occurrence: IT)
  Receive Date: 20210510
  Receipt Date: 20211123
  Transmission Date: 20220303
  Serious: Yes (Other)
  Sender: FDA-Public Use
  Company Number: None

PATIENT
  Age: 58 Year
  Sex: Female

DRUGS (3)
  1. AUBAGIO [Suspect]
     Active Substance: TERIFLUNOMIDE
     Dosage: UNK
     Route: 048
     Dates: start: 20200201, end: 20210410
  2. XANAX [Concomitant]
     Active Substance: ALPRAZOLAM
     Indication: Insomnia
     Dosage: 15 (DROP (1/12 MILLILITRE))
     Route: 048
  3. VENLAFAXINE HYDROCHLORIDE [Concomitant]
     Active Substance: VENLAFAXINE HYDROCHLORIDE
     Dosage: 150 MG
     Route: 048

REACTIONS (1)
  - Oesophageal carcinoma [Not Recovered/Not Resolved]

NARRATIVE: CASE EVENT DATE: 20210402
